FAERS Safety Report 8599920-6 (Version None)
Quarter: 2012Q3

REPORT INFORMATION
  Report Type: 
  Country: None (occurrence: None)
  Receive Date: 20120816
  Receipt Date: 20120806
  Transmission Date: 20120928
  Serious: Yes (Hospitalization)
  Sender: FDA-Public Use
  Company Number: CA-OPTIMER-20120093

PATIENT
  Sex: Male

DRUGS (24)
  1. TOBRAMYCIN SULFATE [Concomitant]
  2. HYDROMORPHONE HYDROCHLORIDE [Concomitant]
  3. ALBUTEROL SULATE [Concomitant]
  4. TACROLIMUS [Concomitant]
  5. INSULIN [Concomitant]
  6. CHOLECALCIFEROL [Concomitant]
  7. HEPARIN SODIUM [Concomitant]
  8. LORAZEPAM [Concomitant]
  9. MAGNESIUM HYDROXIDE TAB [Concomitant]
  10. HYDROCORTISONE [Concomitant]
  11. DALTEPARIN SODIUM [Concomitant]
  12. DIFICID [Suspect]
     Indication: CLOSTRIDIAL INFECTION
     Dosage: 200 MG, BID
     Route: 048
     Dates: start: 20120624, end: 20120706
  13. METRONIDAZOLE [Concomitant]
  14. ACETAMINOPHEN [Concomitant]
  15. OXAZEPAM [Concomitant]
  16. MEROPENEM [Concomitant]
  17. CELLCEPT [Concomitant]
  18. SEPTRA [Concomitant]
  19. FOSAMAX [Concomitant]
  20. CALCIUM CARBONATE [Concomitant]
  21. PANCRELIPASE [Concomitant]
  22. MIRALAX [Concomitant]
  23. DIPHENHYDRAMINE HYDROCHLORIDE [Concomitant]
  24. SOLU-MEDROL [Concomitant]

REACTIONS (3)
  - RESPIRATORY TRACT INFECTION [None]
  - OFF LABEL USE [None]
  - ABDOMINAL PAIN [None]
